FAERS Safety Report 7652735-5 (Version None)
Quarter: 2011Q3

REPORT INFORMATION
  Report Type: 
  Country: None (occurrence: None)
  Receive Date: 20110803
  Receipt Date: 20110725
  Transmission Date: 20111222
  Serious: Yes (Other)
  Sender: FDA-Public Use
  Company Number: US-JNJFOC-20110710944

PATIENT
  Sex: Male
  Weight: 74.84 kg

DRUGS (2)
  1. RISPERDAL CONSTA [Suspect]
     Indication: OBSESSIVE-COMPULSIVE DISORDER
     Route: 030
  2. RISPERDAL CONSTA [Suspect]
     Indication: SCHIZOPHRENIA, PARANOID TYPE
     Route: 030

REACTIONS (5)
  - NIGHTMARE [None]
  - PRODUCT QUALITY ISSUE [None]
  - SUICIDAL IDEATION [None]
  - CONDITION AGGRAVATED [None]
  - DRUG DOSE OMISSION [None]
